FAERS Safety Report 20860985 (Version 2)
Quarter: 2022Q3

REPORT INFORMATION
  Report Type: Spontaneous
  Country: US (occurrence: US)
  Receive Date: 20220523
  Receipt Date: 20220810
  Transmission Date: 20221027
  Serious: Yes (Other)
  Sender: FDA-Public Use
  Company Number: US-BRISTOL-MYERS SQUIBB COMPANY-2022-041131

PATIENT
  Age: 72 Year
  Sex: Male
  Weight: 108.41 kg

DRUGS (13)
  1. REVLIMID [Suspect]
     Active Substance: LENALIDOMIDE
     Indication: Plasma cell myeloma
     Dosage: 1 DAILY FOR 21 DAYS AND 7 OFF.
     Route: 048
     Dates: start: 20150731
  2. REVLIMID [Suspect]
     Active Substance: LENALIDOMIDE
     Dosage: ON GOING LOWER DOSE
     Route: 048
     Dates: start: 20190419
  3. REVLIMID [Suspect]
     Active Substance: LENALIDOMIDE
     Route: 065
  4. REVLIMID [Suspect]
     Active Substance: LENALIDOMIDE
     Route: 048
     Dates: start: 20220622
  5. DEXAMETHASONE [Suspect]
     Active Substance: DEXAMETHASONE
     Indication: Plasma cell myeloma
     Dosage: ON GOING LOWER DOSE
     Route: 048
     Dates: start: 20150824
  6. DEXAMETHASONE [Suspect]
     Active Substance: DEXAMETHASONE
     Route: 048
     Dates: start: 20150824
  7. ASPIRIN [Concomitant]
     Active Substance: ASPIRIN
     Indication: Prophylaxis
     Route: 048
     Dates: start: 20190826
  8. FINASTERIDE [Concomitant]
     Active Substance: FINASTERIDE
     Indication: Product used for unknown indication
     Dosage: 1 PO DAILY
     Route: 048
  9. GABAPENTIN [Concomitant]
     Active Substance: GABAPENTIN
     Indication: Pain
     Dosage: PRN
     Route: 048
     Dates: start: 20200121
  10. LISINOPRIL [Concomitant]
     Active Substance: LISINOPRIL
     Indication: Product used for unknown indication
     Dosage: DAILY B
     Route: 048
     Dates: start: 20190826
  11. HYDROCHLOROTHIAZIDE [Concomitant]
     Active Substance: HYDROCHLOROTHIAZIDE
     Route: 048
     Dates: start: 20190419
  12. MELOXICAM [Concomitant]
     Active Substance: MELOXICAM
     Route: 048
     Dates: start: 20190419
  13. OMEPRAZOLE [Concomitant]
     Active Substance: OMEPRAZOLE
     Route: 048
     Dates: start: 20190419

REACTIONS (6)
  - Dizziness [Not Recovered/Not Resolved]
  - Drug tolerance decreased [Recovering/Resolving]
  - Insomnia [Recovering/Resolving]
  - Fatigue [Recovering/Resolving]
  - Contusion [Recovering/Resolving]
  - Asthenia [Recovering/Resolving]

NARRATIVE: CASE EVENT DATE: 20220511
